FAERS Safety Report 20073367 (Version 1)
Quarter: 2021Q4

REPORT INFORMATION
  Report Type: Report from Study
  Country: ZA (occurrence: ZA)
  Receive Date: 20211116
  Receipt Date: 20211116
  Transmission Date: 20220303
  Serious: Yes (Other)
  Sender: FDA-Public Use
  Company Number: ZA-NOVARTISPH-NVSC2021ZA258559

PATIENT
  Age: 58 Year
  Sex: Female

DRUGS (1)
  1. COSENTYX [Suspect]
     Active Substance: SECUKINUMAB
     Indication: Ankylosing spondylitis
     Dosage: 150 MG, QMO
     Route: 058
     Dates: start: 20210423

REACTIONS (6)
  - Cataract [Unknown]
  - Pain [Unknown]
  - Vision blurred [Unknown]
  - Weight increased [Unknown]
  - Inflammation [Unknown]
  - Arthritis [Unknown]

NARRATIVE: CASE EVENT DATE: 20211109
